FAERS Safety Report 7936867-X (Version None)
Quarter: 2011Q4

REPORT INFORMATION
  Report Type: 
  Country: None (occurrence: None)
  Receive Date: 20111123
  Receipt Date: 20111123
  Transmission Date: 20120403
  Serious: Yes (Other)
  Sender: FDA-Public Use
  Company Number: None

PATIENT
  Age: 46 Year
  Sex: Female
  Weight: 79.378 kg

DRUGS (1)
  1. PROAIR HFA [Suspect]
     Indication: ASTHMA
     Dosage: 2 PUFFS
     Route: 055
     Dates: start: 20071001, end: 20111122

REACTIONS (4)
  - DEVICE OCCLUSION [None]
  - DEVICE MALFUNCTION [None]
  - PRODUCT SUBSTITUTION ISSUE [None]
  - THERAPEUTIC RESPONSE DECREASED [None]
